FAERS Safety Report 19454377 (Version 2)
Quarter: 2021Q3

REPORT INFORMATION
  Report Type: Spontaneous
  Country: BR (occurrence: BR)
  Receive Date: 20210623
  Receipt Date: 20210707
  Transmission Date: 20211014
  Serious: No
  Sender: FDA-Public Use
  Company Number: BR-NOVOPROD-823101

PATIENT
  Age: 20 Year
  Sex: Female
  Weight: 79 kg

DRUGS (3)
  1. INSULATARD HM [Suspect]
     Active Substance: INSULIN HUMAN
     Indication: PRODUCT USED FOR UNKNOWN INDICATION
     Dosage: 32?0?22?0
     Route: 065
  2. INSULATARD HM [Suspect]
     Active Substance: INSULIN HUMAN
     Dosage: 26? 0? 0 ? 20
     Route: 065
  3. PROGESTERONE. [Concomitant]
     Active Substance: PROGESTERONE
     Indication: AMENORRHOEA
     Dosage: UNK

REACTIONS (2)
  - Hypoglycaemia [Unknown]
  - Weight increased [Unknown]
